FAERS Safety Report 4307052-8 (Version None)
Quarter: 2004Q1

REPORT INFORMATION
  Report Type: 
  Country: None (occurrence: None)
  Receive Date: 20040225
  Receipt Date: 20040211
  Transmission Date: 20041129
  Serious: Yes (Disabling, Other)
  Sender: FDA-Public Use
  Company Number: 202916

PATIENT
  Age: 69 Year
  Sex: Female

DRUGS (9)
  1. MABTHERA        (RITUXIMAB [Suspect]
     Indication: LYMPHOMA
     Dosage: 620 MG, UNK, INTRAVENOUS
     Route: 042
     Dates: start: 20011210, end: 20031001
  2. DEXAMETHASONE SODIUM PHOSPHATE [Concomitant]
  3. CYTARABINE [Concomitant]
  4. CISPLATIN [Concomitant]
  5. DAFLON (MEXICO) (DIOSMIN, HESPERIDIN) [Concomitant]
  6. DIAMICRON (GLICLAZIDE) [Concomitant]
  7. IMPORTAL (LACTITOL) [Concomitant]
  8. DEBRIDAT (TRIMEBUTINE MALEATE) [Concomitant]
  9. ZOCOR [Concomitant]

REACTIONS (5)
  - OPTIC NEURITIS RETROBULBAR [None]
  - OPTIC NEUROPATHY [None]
  - PAPILLOEDEMA [None]
  - SCOTOMA [None]
  - VISUAL ACUITY REDUCED [None]
